FAERS Safety Report 21958308 (Version 4)
Quarter: 2023Q2

REPORT INFORMATION
  Report Type: Spontaneous
  Country: US (occurrence: US)
  Receive Date: 20230206
  Receipt Date: 20230406
  Transmission Date: 20230721
  Serious: No
  Sender: FDA-Public Use
  Company Number: US-Blueprint Medicines Corporation-785

PATIENT
  Sex: Male

DRUGS (4)
  1. AYVAKIT [Suspect]
     Active Substance: AVAPRITINIB
     Indication: Systemic mastocytosis
     Route: 048
     Dates: start: 20230124
  2. AYVAKIT [Suspect]
     Active Substance: AVAPRITINIB
     Route: 065
  3. AYVAKIT [Suspect]
     Active Substance: AVAPRITINIB
     Route: 065
     Dates: start: 20230124
  4. AYVAKIT [Suspect]
     Active Substance: AVAPRITINIB
     Route: 048

REACTIONS (3)
  - Weight increased [Unknown]
  - Fluid retention [Unknown]
  - Swelling [Not Recovered/Not Resolved]
